FAERS Safety Report 17004289 (Version 2)
Quarter: 2019Q4

REPORT INFORMATION
  Report Type: Spontaneous
  Country: US (occurrence: US)
  Receive Date: 20191107
  Receipt Date: 20191205
  Transmission Date: 20200122
  Serious: No
  Sender: FDA-Public Use
  Company Number: US-KYOWAKIRIN-2019BKK017426

PATIENT

DRUGS (1)
  1. CRYSVITA [Suspect]
     Active Substance: BUROSUMAB-TWZA
     Indication: HEREDITARY HYPOPHOSPHATAEMIC RICKETS
     Dosage: 60 MG, 1X/4 WEEKS
     Route: 058
     Dates: start: 2019

REACTIONS (3)
  - Dizziness [Unknown]
  - Dyspnoea [Unknown]
  - Panic attack [Unknown]

NARRATIVE: CASE EVENT DATE: 2019
